FAERS Safety Report 10037440 (Version 1)
Quarter: 2014Q1

REPORT INFORMATION
  Report Type: Spontaneous
  Country: US (occurrence: None)
  Receive Date: 20140325
  Receipt Date: 20140325
  Transmission Date: 20141002
  Serious: No
  Sender: FDA-Public Use
  Company Number: None

PATIENT
  Age: 69 Year
  Sex: Male
  Weight: 117.48 kg

DRUGS (14)
  1. MIRAPEX ER [Suspect]
     Indication: PARKINSON^S DISEASE
     Dosage: 1 TABLET
     Route: 048
     Dates: end: 20140222
  2. VYTORIAN [Concomitant]
  3. GARBIDOPA/LEVO [Concomitant]
  4. AZILECT [Concomitant]
  5. FUROSEMIDE [Concomitant]
  6. TAMSULOSIN [Concomitant]
  7. COQ10 [Concomitant]
  8. B-6 [Concomitant]
  9. D-3 [Concomitant]
  10. SUPER B COMPLEX [Concomitant]
  11. L-GLUTAMINE [Concomitant]
  12. FISH OIL [Concomitant]
  13. BABY ASPIRIN [Concomitant]
  14. STOOL SOFTENER [Concomitant]

REACTIONS (6)
  - Screaming [None]
  - Nightmare [None]
  - Joint swelling [None]
  - Pathological gambling [None]
  - Obsessive-compulsive disorder [None]
  - Sexually inappropriate behaviour [None]
